FAERS Safety Report 7096345-X (Version None)
Quarter: 2010Q4

REPORT INFORMATION
  Report Type: 
  Country: None (occurrence: None)
  Receive Date: 20101111
  Receipt Date: 20101105
  Transmission Date: 20110411
  Serious: Yes (Life-Threatening, Hospitalization)
  Sender: FDA-Public Use
  Company Number: GB-TEVA-254230ISR

PATIENT
  Age: 48 Year
  Sex: Female

DRUGS (4)
  1. CITALOPRAM HYDROBROMIDE [Suspect]
     Route: 048
  2. DIAZEPAM [Suspect]
     Route: 048
  3. ZOPICLONE [Suspect]
     Route: 048
  4. OLANZAPINE [Suspect]
     Route: 048

REACTIONS (1)
  - RESPIRATORY ARREST [None]
